FAERS Safety Report 6600505-9 (Version None)
Quarter: 2010Q1

REPORT INFORMATION
  Report Type: 
  Country: None (occurrence: None)
  Receive Date: 20100224
  Receipt Date: 20100212
  Transmission Date: 20100710
  Serious: Yes (Hospitalization)
  Sender: FDA-Public Use
  Company Number: US-MERCK-1001USA03561

PATIENT
  Age: 73 Year
  Sex: Male

DRUGS (4)
  1. COZAAR [Suspect]
     Indication: HYPERTENSION
     Route: 048
     Dates: start: 20090112, end: 20100105
  2. COZAAR [Suspect]
     Route: 048
     Dates: start: 20100106
  3. METOPROLOL [Concomitant]
     Route: 065
  4. TOPROL-XL [Concomitant]
     Route: 065

REACTIONS (3)
  - ABDOMINAL HERNIA [None]
  - BLOOD PRESSURE FLUCTUATION [None]
  - DRUG INEFFECTIVE [None]
